FAERS Safety Report 10142816 (Version 1)
Quarter: 2014Q2

REPORT INFORMATION
  Report Type: Spontaneous
  Country: US (occurrence: None)
  Receive Date: 20140429
  Receipt Date: 20140429
  Transmission Date: 20141212
  Serious: No
  Sender: FDA-Public Use
  Company Number: None

PATIENT
  Sex: Male

DRUGS (2)
  1. OLYSIO [Suspect]
     Indication: CHRONIC HEPATITIS C
     Route: 048
     Dates: start: 20140304
  2. SOVALDI [Suspect]
     Indication: SURGERY
     Route: 048
     Dates: start: 20140304

REACTIONS (2)
  - Alopecia [None]
  - Abdominal pain upper [None]
